FAERS Safety Report 5217957-1 (Version None)
Quarter: 2007Q1

REPORT INFORMATION
  Report Type: 
  Country: None (occurrence: None)
  Receive Date: 20070124
  Receipt Date: 20070119
  Transmission Date: 20070707
  Serious: Yes (Death)
  Sender: FDA-Public Use
  Company Number: PHNU2007DE00615

PATIENT
  Age: 68 Year
  Sex: Female
  Weight: 85 kg

DRUGS (2)
  1. FORADIL [Suspect]
     Indication: DYSPNOEA
     Dosage: UNKNOWN
     Dates: start: 20051101
  2. AVELOX [Concomitant]
     Dosage: UNKNOWN
     Route: 065
     Dates: start: 20051101

REACTIONS (5)
  - CARDIOGENIC SHOCK [None]
  - CORONARY ARTERY STENOSIS [None]
  - INTRACARDIAC THROMBUS [None]
  - RENAL ARTERIOSCLEROSIS [None]
  - RIGHT VENTRICULAR FAILURE [None]
